FAERS Safety Report 6252624-7 (Version None)
Quarter: 2009Q3

REPORT INFORMATION
  Report Type: 
  Country: None (occurrence: None)
  Receive Date: 20090701
  Receipt Date: 20090619
  Transmission Date: 20100115
  Serious: Yes (Hospitalization)
  Sender: FDA-Public Use
  Company Number: DE-ROCHE-640952

PATIENT
  Sex: Male
  Weight: 60 kg

DRUGS (3)
  1. XELODA [Suspect]
     Indication: GASTRIC CANCER
     Route: 048
     Dates: start: 20090115, end: 20090309
  2. CISPLATIN [Suspect]
     Indication: GASTRIC CANCER
     Route: 042
     Dates: start: 20090115, end: 20090309
  3. AMG 386 [Suspect]
     Indication: GASTRIC CANCER
     Dosage: APPLICATION ON THE 1ST  AND THE 8TH DAY OF CYCLE
     Route: 042
     Dates: start: 20090115, end: 20090309

REACTIONS (1)
  - GENERAL PHYSICAL HEALTH DETERIORATION [None]
